FAERS Safety Report 13897418 (Version 11)
Quarter: 2019Q3

REPORT INFORMATION
  Report Type: Report from Study
  Country: US (occurrence: US)
  Receive Date: 20170823
  Receipt Date: 20190917
  Transmission Date: 20191004
  Serious: Yes (Death, Hospitalization)
  Sender: FDA-Public Use
  Company Number: PHHO2015US018869

PATIENT
  Age: 72 Year
  Sex: Male
  Weight: 86.9 kg

DRUGS (24)
  1. ALDACTONE [Suspect]
     Active Substance: SPIRONOLACTONE
     Indication: CARDIAC FAILURE
     Dosage: 12.5 MG, QD
     Route: 048
     Dates: start: 20170707, end: 20170810
  2. TOPROL XL [Concomitant]
     Active Substance: METOPROLOL SUCCINATE
     Indication: PRODUCT USED FOR UNKNOWN INDICATION
     Dosage: 200 MG, QD
     Route: 048
     Dates: end: 20180426
  3. ENTRESTO [Suspect]
     Active Substance: SACUBITRIL\VALSARTAN
     Indication: CARDIAC FAILURE
     Dosage: 200 MG, BID
     Route: 048
     Dates: start: 20150128, end: 20170810
  4. GLUCOPHAGE [Suspect]
     Active Substance: METFORMIN HYDROCHLORIDE
     Indication: DIABETES MELLITUS
     Dosage: 500 MG, BID
     Route: 048
     Dates: start: 20141104, end: 20170810
  5. LASIX [Concomitant]
     Active Substance: FUROSEMIDE
     Indication: CARDIAC FAILURE
     Dosage: 1 DF (20-40 MG), QD
     Route: 048
     Dates: start: 20140729, end: 20160823
  6. PLAVIX [Concomitant]
     Active Substance: CLOPIDOGREL BISULFATE
     Indication: CORONARY ARTERY DISEASE
     Dosage: 75 MG, QD
     Route: 048
     Dates: start: 20151016
  7. ENTRESTO [Suspect]
     Active Substance: SACUBITRIL\VALSARTAN
     Dosage: 200 MG, BID
     Route: 048
     Dates: start: 20170817, end: 20181221
  8. DEMADEX [Suspect]
     Active Substance: TORSEMIDE
     Dosage: 20 MG, BID
     Route: 048
     Dates: end: 20180426
  9. NORVASC [Suspect]
     Active Substance: AMLODIPINE BESYLATE
     Indication: CARDIAC FAILURE
     Dosage: 10 MG, QD
     Route: 048
     Dates: start: 20151002
  10. LASIX [Concomitant]
     Active Substance: FUROSEMIDE
     Dosage: 40 MG, BID
     Route: 042
     Dates: start: 20160824, end: 20160824
  11. LASIX [Concomitant]
     Active Substance: FUROSEMIDE
     Dosage: 40 MG, QD
     Route: 048
     Dates: start: 20170727, end: 20170728
  12. METOPROLOL. [Suspect]
     Active Substance: METOPROLOL
     Indication: CARDIAC FAILURE
     Dosage: 100 MG, BID
     Route: 048
     Dates: start: 20151016
  13. DEMADEX [Suspect]
     Active Substance: TORSEMIDE
     Indication: CARDIAC FAILURE ACUTE
     Dosage: 20 MG, BID
     Route: 048
     Dates: start: 20170804
  14. NORVASC [Suspect]
     Active Substance: AMLODIPINE BESYLATE
     Indication: HYPERTENSION
  15. LASIX [Concomitant]
     Active Substance: FUROSEMIDE
     Dosage: 40 MG, QD
     Route: 042
     Dates: start: 20160825
  16. PLACEBO [Suspect]
     Active Substance: UNSPECIFIED INGREDIENT
     Indication: CARDIAC FAILURE
     Dosage: UNK
     Route: 048
     Dates: start: 20150128, end: 20170810
  17. DEMADEX [Suspect]
     Active Substance: TORSEMIDE
     Dosage: 10 MG, BID
     Route: 048
     Dates: start: 20170812
  18. DILTIAZEM. [Concomitant]
     Active Substance: DILTIAZEM
     Indication: ATRIAL FIBRILLATION
     Dosage: 120 MG, QD
     Route: 048
     Dates: start: 20160623
  19. HYDRALAZINE [Concomitant]
     Active Substance: HYDRALAZINE HYDROCHLORIDE
     Indication: CARDIAC FAILURE
     Dosage: 50 MG, TID
     Route: 048
     Dates: start: 20170630
  20. PLACEBO [Suspect]
     Active Substance: UNSPECIFIED INGREDIENT
     Dosage: UNK
     Route: 048
     Dates: start: 20170817, end: 20181221
  21. METOPROLOL. [Suspect]
     Active Substance: METOPROLOL
     Indication: HYPERTENSION
  22. IMDUR [Suspect]
     Active Substance: ISOSORBIDE MONONITRATE
     Indication: CARDIAC FAILURE
     Dosage: 120 MG, QD
     Route: 048
     Dates: start: 20140304
  23. IMDUR [Suspect]
     Active Substance: ISOSORBIDE MONONITRATE
     Indication: HYPERTENSION
     Dosage: 120 MG, QD
     Route: 048
     Dates: end: 20180426
  24. DEMADEX [Suspect]
     Active Substance: TORSEMIDE
     Indication: ACUTE RESPIRATORY FAILURE
     Dosage: 40 MG, BID
     Route: 048
     Dates: start: 20170807

REACTIONS (11)
  - Cardiac failure acute [Recovered/Resolved]
  - Cardiac failure [Recovered/Resolved with Sequelae]
  - Acute kidney injury [Recovered/Resolved]
  - Cardiac failure [Recovered/Resolved]
  - Cardiac failure congestive [Fatal]
  - Cardiac failure [Recovered/Resolved]
  - Hypotension [Recovered/Resolved]
  - Acute respiratory failure [Recovered/Resolved]
  - Acute respiratory failure [Recovered/Resolved]
  - Cardiac failure [Recovered/Resolved]
  - Pleural effusion [Recovered/Resolved]

NARRATIVE: CASE EVENT DATE: 20151102
